FAERS Safety Report 16654904 (Version 2)
Quarter: 2019Q4

REPORT INFORMATION
  Report Type: Spontaneous
  Country: CH (occurrence: CH)
  Receive Date: 20190801
  Receipt Date: 20191017
  Transmission Date: 20200122
  Serious: Yes (Hospitalization, Other)
  Sender: FDA-Public Use
  Company Number: CH-BRISTOL-MYERS SQUIBB COMPANY-BMS-2019-072990

PATIENT
  Age: 80 Year
  Sex: Male
  Weight: 84 kg

DRUGS (1)
  1. OPDIVO [Suspect]
     Active Substance: NIVOLUMAB
     Indication: METASTATIC MALIGNANT MELANOMA
     Dosage: 240 MILLIGRAM, NUMBER OF UNITS IN THE INTERVAL: 2 IN TOTAL
     Route: 042
     Dates: start: 20190329, end: 20190429

REACTIONS (5)
  - Sjogren^s syndrome [Unknown]
  - Decreased appetite [Unknown]
  - Adrenal insufficiency [Unknown]
  - Oral candidiasis [Unknown]
  - Acute interstitial pneumonitis [Recovering/Resolving]

NARRATIVE: CASE EVENT DATE: 201904
